FAERS Safety Report 6031624-6 (Version None)
Quarter: 2009Q1

REPORT INFORMATION
  Report Type: 
  Country: None (occurrence: None)
  Receive Date: 20090108
  Receipt Date: 20081231
  Transmission Date: 20090719
  Serious: Yes (Other)
  Sender: FDA-Public Use
  Company Number: US-ELI_LILLY_AND_COMPANY-US200901000158

PATIENT
  Sex: Male
  Weight: 75.283 kg

DRUGS (14)
  1. BYETTA [Suspect]
     Indication: TYPE 2 DIABETES MELLITUS
     Dosage: 10 UG, EACH MORNING
     Route: 058
     Dates: start: 20060901
  2. BYETTA [Suspect]
     Dosage: 5 UG, EACH EVENING
     Route: 058
     Dates: start: 20060901
  3. GLYBURIDE [Concomitant]
     Indication: TYPE 2 DIABETES MELLITUS
  4. SIMVASTATIN [Concomitant]
     Indication: BLOOD CHOLESTEROL INCREASED
     Dates: start: 20081101
  5. ZETIA [Concomitant]
     Indication: BLOOD CHOLESTEROL INCREASED
  6. PLAVIX [Concomitant]
     Dosage: 75 MG, 2/D
     Dates: start: 20080901
  7. TRICOR [Concomitant]
     Indication: BLOOD CHOLESTEROL INCREASED
  8. TRAZODONE HCL [Concomitant]
     Indication: SLEEP DISORDER
     Dosage: 150 MG, AS NEEDED
     Route: 048
  9. LISINOPRIL [Concomitant]
     Indication: BLOOD PRESSURE INCREASED
  10. GLUCOPHAGE [Concomitant]
     Indication: TYPE 2 DIABETES MELLITUS
  11. COREG [Concomitant]
     Indication: BLOOD PRESSURE INCREASED
     Dosage: 25 MG, DAILY (1/D)
     Route: 048
  12. TETRABENAZINE [Concomitant]
  13. ASACOL [Concomitant]
  14. IMDUR [Concomitant]
     Dosage: UNK, AS NEEDED

REACTIONS (2)
  - CARDIAC OPERATION [None]
  - MEMORY IMPAIRMENT [None]
